FAERS Safety Report 7379999-X (Version None)
Quarter: 2011Q1

REPORT INFORMATION
  Report Type: 
  Country: None (occurrence: None)
  Receive Date: 20110318
  Receipt Date: 20110309
  Transmission Date: 20110831
  Serious: Yes (Hospitalization)
  Sender: FDA-Public Use
  Company Number: 2011SP010647

PATIENT
  Age: 62 Year
  Sex: Male

DRUGS (11)
  1. IRBESARTAN [Concomitant]
  2. ZOPICLONE [Concomitant]
  3. BACTRIM [Suspect]
     Indication: DISEASE RECURRENCE
     Dosage: 2 DF;TID;PO
     Route: 048
     Dates: start: 20110106
  4. BACTRIM [Suspect]
     Indication: INTERVERTEBRAL DISCITIS
     Dosage: 2 DF;TID;PO
     Route: 048
     Dates: start: 20110106
  5. LEDERFOLINE [Concomitant]
  6. IRBESARTAN [Concomitant]
  7. MOVIPREP [Concomitant]
  8. MIRTAZAPINE [Suspect]
     Indication: DEPRESSION
     Dosage: 15 MF;QD;PO
     Route: 048
     Dates: start: 20110118, end: 20110207
  9. CORDARONE [Concomitant]
  10. PREVISCAN [Concomitant]
  11. ATORVASATINE [Concomitant]

REACTIONS (4)
  - HYPONATRAEMIA [None]
  - HYPERKALAEMIA [None]
  - BLOOD CREATININE INCREASED [None]
  - DRUG INTERACTION [None]
